FAERS Safety Report 5930408-4 (Version None)
Quarter: 2008Q4

REPORT INFORMATION
  Report Type: 
  Country: None (occurrence: None)
  Receive Date: 20081021
  Receipt Date: 20081009
  Transmission Date: 20090506
  Serious: Yes (Hospitalization)
  Sender: FDA-Public Use
  Company Number: JPI-P-004934

PATIENT
  Age: 49 Year
  Sex: Male
  Weight: 68.0396 kg

DRUGS (10)
  1. XYREM [Suspect]
     Indication: NARCOLEPSY
     Dosage: 9 GM (4.5 GM, 2 IN 1 D) ,ORAL; 4.5 GM (2.25 GM, 2 IN 1 D) ,ORAL
     Route: 048
     Dates: start: 20080901, end: 20081007
  2. XYREM [Suspect]
     Indication: NARCOLEPSY
     Dosage: 9 GM (4.5 GM, 2 IN 1 D) ,ORAL; 4.5 GM (2.25 GM, 2 IN 1 D) ,ORAL
     Route: 048
     Dates: start: 20060101
  3. METHADONE HCL [Suspect]
     Indication: BACK PAIN
     Dosage: (2 TEASPOONFULS TWICE DAILY) ,ORAL
     Route: 048
     Dates: start: 20080922
  4. UNSPECIFIED PAIN MEDICATIONS (ALL OTHER THERAPEUTIC PRODUCTS) [Concomitant]
  5. HYDROCODONE BITARTRATE AND ACETAMINOPHEN (VICODIN) [Concomitant]
  6. METHYLPHENIDATE HCL [Concomitant]
  7. LEVOTHYROXINE SODIUM [Concomitant]
  8. LOPINAVIR W/RITONAVIR (KALETRA /01506501/) [Concomitant]
  9. TETRAHYDROCANNABINOL (TETRAHYDROCANNABINOL) [Concomitant]
  10. MEGESTROL ACETATE (MEGESTROL ACETATE) (SOLUTION) [Concomitant]

REACTIONS (6)
  - BLOOD PRESSURE DECREASED [None]
  - BONE PAIN [None]
  - CONDITION AGGRAVATED [None]
  - HEART RATE DECREASED [None]
  - HYPERHIDROSIS [None]
  - INITIAL INSOMNIA [None]
